FAERS Safety Report 22986874 (Version 3)
Quarter: 2023Q4

REPORT INFORMATION
  Report Type: Spontaneous
  Country: US (occurrence: US)
  Receive Date: 20230926
  Receipt Date: 20231108
  Transmission Date: 20240110
  Serious: Yes (Hospitalization, Other)
  Sender: FDA-Public Use
  Company Number: US-BRISTOL-MYERS SQUIBB COMPANY-2023-135652

PATIENT
  Age: 74 Year
  Sex: Male
  Weight: 92.08 kg

DRUGS (2)
  1. POMALYST [Suspect]
     Active Substance: POMALIDOMIDE
     Indication: Plasma cell myeloma
     Dosage: 3WKSON,1OFF
     Route: 048
     Dates: start: 20220630
  2. POMALYST [Suspect]
     Active Substance: POMALIDOMIDE
     Dosage: FREQUENCY: 9
     Route: 048
     Dates: start: 20230922

REACTIONS (1)
  - COVID-19 pneumonia [Recovered/Resolved]

NARRATIVE: CASE EVENT DATE: 20230902
